FAERS Safety Report 9280135 (Version 1)
Quarter: 2013Q2

REPORT INFORMATION
  Report Type: Spontaneous
  Country: US (occurrence: None)
  Receive Date: 20130507
  Receipt Date: 20130507
  Transmission Date: 20140414
  Serious: Yes (Disabling)
  Sender: FDA-Public Use
  Company Number: None

PATIENT
  Age: 64 Year
  Sex: Female
  Weight: 86.18 kg

DRUGS (1)
  1. CLOZARIL [Suspect]
     Indication: MENTAL DISORDER
     Route: 048
     Dates: start: 2009, end: 2011

REACTIONS (6)
  - Pollakiuria [None]
  - Micturition urgency [None]
  - Urinary incontinence [None]
  - Hallucination, auditory [None]
  - Fear [None]
  - Weight increased [None]
